FAERS Safety Report 17543236 (Version 6)
Quarter: 2020Q2

REPORT INFORMATION
  Report Type: Spontaneous
  Country: CA (occurrence: CA)
  Receive Date: 20200316
  Receipt Date: 20200504
  Transmission Date: 20200713
  Serious: Yes (Other)
  Sender: FDA-Public Use
  Company Number: CA-ORION CORPORATION ORION PHARMA-TREX2017-1635

PATIENT
  Age: 60 Year
  Sex: Female
  Weight: 90.7 kg

DRUGS (13)
  1. INFLECTRA [Suspect]
     Active Substance: INFLIXIMAB-DYYB
     Dosage: 0, 2, 6, THEN EVERY 8 WEEKS
     Route: 042
     Dates: start: 20200130
  2. FOLIC ACID. [Concomitant]
     Active Substance: FOLIC ACID
     Route: 065
  3. CORTISONE [Concomitant]
     Active Substance: CORTISONE
     Route: 048
     Dates: start: 20171116
  4. INFLECTRA [Suspect]
     Active Substance: INFLIXIMAB-DYYB
     Dosage: EVERY 0,2, 6 WEEKS, THEN EVERY 8 WEEKS
     Route: 041
     Dates: start: 20180108
  5. BISOPROLOL [Concomitant]
     Active Substance: BISOPROLOL
     Indication: BRADYCARDIA
     Route: 065
  6. METHOTREXATE (TRADE NAME UNKNOWN) [Suspect]
     Active Substance: METHOTREXATE
     Indication: PRODUCT USED FOR UNKNOWN INDICATION
     Route: 048
  7. INFLECTRA [Suspect]
     Active Substance: INFLIXIMAB-DYYB
     Dosage: EVERY 0, 2, 6 WEEKS, THEN EVERY 8 WEEKS
     Route: 041
     Dates: start: 20180305, end: 20180430
  8. INFLECTRA [Suspect]
     Active Substance: INFLIXIMAB-DYYB
     Dosage: 0, 2, 6, THEN EVERY 8 WEEKS
     Route: 042
     Dates: start: 20181220
  9. INFLECTRA [Suspect]
     Active Substance: INFLIXIMAB-DYYB
     Dosage: EVERY 0, 2, 6 WEEKS, THEN EVERY 8 WEEKS
     Route: 041
     Dates: start: 20180622
  10. INFLECTRA [Suspect]
     Active Substance: INFLIXIMAB-DYYB
     Dosage: 0, 2, 6, THEN EVERY 8 WEEKS
     Route: 042
     Dates: start: 20181220
  11. INFLECTRA [Suspect]
     Active Substance: INFLIXIMAB-DYYB
     Indication: PSORIATIC ARTHROPATHY
     Dosage: EVERY 0,2,6 WEEKS, THEN EVERY 8 WEEKS
     Route: 041
     Dates: start: 20170512, end: 20180430
  12. INFLECTRA [Suspect]
     Active Substance: INFLIXIMAB-DYYB
     Dosage: EVERY 0, 2, 6 WEEKS, THEN EVERY 8 WEEKS
     Route: 042
     Dates: start: 20181023
  13. MONOCOR [Concomitant]
     Active Substance: BISOPROLOL FUMARATE
     Route: 065

REACTIONS (15)
  - Urinary tract infection [Not Recovered/Not Resolved]
  - Blood pressure increased [Unknown]
  - Hyperhidrosis [Unknown]
  - Heart rate decreased [Unknown]
  - Musculoskeletal stiffness [Not Recovered/Not Resolved]
  - Arthritis [Not Recovered/Not Resolved]
  - Pneumonia [Recovered/Resolved]
  - Infection [Unknown]
  - Therapeutic product effect incomplete [Unknown]
  - Arthralgia [Not Recovered/Not Resolved]
  - Oropharyngeal discomfort [Unknown]
  - Cough [Unknown]
  - Movement disorder [Unknown]
  - Nasopharyngitis [Recovered/Resolved]
  - Respiratory tract infection [Recovered/Resolved]

NARRATIVE: CASE EVENT DATE: 20170522
